FAERS Safety Report 8778501 (Version 1)
Quarter: 2012Q4

REPORT INFORMATION
  Report Type: 
  Country: DE (occurrence: DE)
  Receive Date: 20120912
  Receipt Date: 20120912
  Transmission Date: 20130627
  Serious: Yes (Congenital Anomaly, Other)
  Sender: FDA-Public Use
  Company Number: DE-GLAXOSMITHKLINE-D0077005A

PATIENT
  Age: 0 Year
  Sex: Female
  Weight: 3 kg

DRUGS (4)
  1. LAMOTRIGINE [Suspect]
     Indication: EPILEPSY
     Route: 064
     Dates: start: 20110218, end: 20111202
  2. VIMPAT [Suspect]
     Indication: EPILEPSY
     Route: 064
     Dates: start: 20110218, end: 20111202
  3. ZEBINIX [Concomitant]
     Indication: EPILEPSY
     Dosage: 200MG per day
     Route: 064
     Dates: start: 20110218, end: 20110323
  4. FOLIC ACID [Concomitant]
     Indication: PROPHYLAXIS OF NEURAL TUBE DEFECT
     Dosage: .8MG per day
     Route: 064
     Dates: start: 20110418, end: 20111202

REACTIONS (3)
  - Atrial septal defect [Recovered/Resolved]
  - Directional Doppler flow tests abnormal [Recovered/Resolved]
  - Small for dates baby [Unknown]
